FAERS Safety Report 9031728 (Version 2)
Quarter: 2013Q3

REPORT INFORMATION
  Report Type: Spontaneous
  Country: FR (occurrence: FR)
  Receive Date: 20130124
  Receipt Date: 20130917
  Transmission Date: 20140515
  Serious: Yes (Other)
  Sender: FDA-Public Use
  Company Number: FR-SANOFI-AVENTIS-2013SA004315

PATIENT
  Age: 63 Year
  Sex: Male

DRUGS (8)
  1. APIDRA [Suspect]
     Indication: TYPE 2 DIABETES MELLITUS
     Route: 058
  2. LANTUS [Suspect]
     Indication: TYPE 2 DIABETES MELLITUS
     Route: 058
  3. KARDEGIC [Suspect]
     Indication: PRODUCT USED FOR UNKNOWN INDICATION
     Route: 048
  4. ROSUVASTATIN CALCIUM [Suspect]
     Indication: HYPERCHOLESTEROLAEMIA
     Dosage: STRENGTH: 5 MG
     Route: 048
     Dates: start: 200606
  5. JANUMET [Suspect]
     Indication: TYPE 2 DIABETES MELLITUS
     Dosage: STRENGTH:50MG/1000MG
     Route: 048
     Dates: start: 20101209
  6. METFORMIN [Suspect]
     Indication: TYPE 2 DIABETES MELLITUS
     Route: 048
  7. COAPROVEL [Suspect]
     Indication: HYPERTENSION
     Route: 048
  8. AMLODIPINE [Suspect]
     Indication: HYPERTENSION
     Route: 048

REACTIONS (2)
  - Tendon disorder [Recovered/Resolved]
  - Tendon rupture [Recovered/Resolved]
